FAERS Safety Report 18663552 (Version 1)
Quarter: 2020Q4

REPORT INFORMATION
  Report Type: Report from Study
  Country: None (occurrence: US)
  Receive Date: 20201225
  Receipt Date: 20201225
  Transmission Date: 20210114
  Serious: Yes (Other)
  Sender: FDA-Public Use
  Company Number: US-ABBVIE-19K-163-3135189-00

PATIENT
  Sex: Female

DRUGS (5)
  1. IMBRUVICA [Suspect]
     Active Substance: IBRUTINIB
     Dosage: 280 MG, QD
     Route: 048
     Dates: start: 20180806
  2. IMBRUVICA [Suspect]
     Active Substance: IBRUTINIB
     Route: 048
  3. IMBRUVICA [Suspect]
     Active Substance: IBRUTINIB
     Dosage: 420 MG, QD
     Route: 048
     Dates: start: 20180803
  4. IMBRUVICA [Suspect]
     Active Substance: IBRUTINIB
     Indication: LYMPHOCYTIC LEUKAEMIA
     Dosage: 420 MG, QD
     Route: 048
     Dates: start: 20180803
  5. IMBRUVICA [Suspect]
     Active Substance: IBRUTINIB
     Route: 048

REACTIONS (15)
  - Muscular weakness [Unknown]
  - Increased tendency to bruise [Unknown]
  - Peripheral swelling [Unknown]
  - Fatigue [Unknown]
  - Dyspnoea [Unknown]
  - Blood sodium decreased [Not Recovered/Not Resolved]
  - Arrhythmia [Unknown]
  - Contusion [Unknown]
  - Catheterisation cardiac [Not Recovered/Not Resolved]
  - Skin discolouration [Not Recovered/Not Resolved]
  - Muscle spasms [Unknown]
  - Lymphoedema [Not Recovered/Not Resolved]
  - Hypertension [Not Recovered/Not Resolved]
  - Asthenia [Unknown]
  - Tremor [Not Recovered/Not Resolved]
